FAERS Safety Report 5652721-0 (Version None)
Quarter: 2008Q1

REPORT INFORMATION
  Report Type: 
  Country: None (occurrence: None)
  Receive Date: 20080305
  Receipt Date: 20080305
  Transmission Date: 20080703
  Serious: Yes (Hospitalization)
  Sender: FDA-Public Use
  Company Number: None

PATIENT
  Sex: Male
  Weight: 85 kg

DRUGS (2)
  1. TEMOZOLOMIDE [Suspect]
     Dosage: 5100 MG
  2. DEXAMETHASONE TAB [Concomitant]

REACTIONS (3)
  - BRAIN OEDEMA [None]
  - PANCREATITIS [None]
  - ULTRASOUND SCAN ABNORMAL [None]
